FAERS Safety Report 9665936 (Version 1)
Quarter: 2013Q4

REPORT INFORMATION
  Report Type: Spontaneous
  Country: US (occurrence: None)
  Receive Date: 20131031
  Receipt Date: 20131031
  Transmission Date: 20140711
  Serious: Yes (Hospitalization, Other)
  Sender: FDA-Public Use
  Company Number: 2013US002648

PATIENT
  Age: 27 Year
  Sex: Male

DRUGS (1)
  1. ICLUSIG [Suspect]
     Route: 048
     Dates: start: 201309, end: 2013

REACTIONS (3)
  - Pericardial effusion [None]
  - Scar [None]
  - Off label use [None]
